FAERS Safety Report 14354696 (Version 2)
Quarter: 2018Q1

REPORT INFORMATION
  Report Type: Report from Study
  Country: RU (occurrence: RU)
  Receive Date: 20180105
  Receipt Date: 20180212
  Transmission Date: 20180509
  Serious: Yes (Death, Life-Threatening)
  Sender: FDA-Public Use
  Company Number: RU-CELGENEUS-RUS-20171208395

PATIENT
  Age: 80 Year
  Sex: Female
  Weight: 62 kg

DRUGS (12)
  1. AZACITIDINE. [Suspect]
     Active Substance: AZACITIDINE
     Indication: ACUTE MYELOID LEUKAEMIA
     Dosage: 75 MILLIGRAM/SQ. METER
     Route: 041
     Dates: start: 20171102, end: 20171108
  2. DICYNON [Concomitant]
     Indication: HAEMATOMA
  3. METEOSPASMIL [Concomitant]
     Indication: GASTROINTESTINAL DISORDER
     Dosage: 600 MILLIGRAM
     Route: 048
     Dates: start: 20171115
  4. MUCOFALK [Concomitant]
     Indication: GASTROINTESTINAL DISORDER
     Dosage: 10 GRAM
     Route: 048
     Dates: start: 20171105
  5. DICYNON [Concomitant]
     Indication: THROMBOCYTOPENIA
     Dosage: 8 MILLILITER
     Route: 041
     Dates: start: 20171105
  6. ALLOPURINOL. [Concomitant]
     Active Substance: ALLOPURINOL
     Indication: PROPHYLAXIS
     Route: 065
     Dates: start: 20171013, end: 20171116
  7. SALINE [Concomitant]
     Active Substance: SODIUM CHLORIDE
     Indication: PROPHYLAXIS
     Route: 065
     Dates: start: 20171031, end: 20171116
  8. VENETOCLAX. [Concomitant]
     Active Substance: VENETOCLAX
     Indication: ACUTE MYELOID LEUKAEMIA
     Route: 065
  9. PERINDOPRIL [Concomitant]
     Active Substance: PERINDOPRIL
     Indication: HYPERTENSION
     Dosage: 8 MILLIGRAM
     Route: 048
     Dates: start: 2015
  10. VEROSPIRON [Concomitant]
     Active Substance: SPIRONOLACTONE
     Indication: HYPERTENSION
     Dosage: 25 MILLIGRAM
     Route: 065
     Dates: start: 2015
  11. POTASSIUM AND MAGNESIUM ASPARTATE [Concomitant]
     Indication: PROPHYLAXIS
     Dosage: .35 GRAM
     Route: 048
     Dates: start: 2015
  12. AZACITIDINE. [Suspect]
     Active Substance: AZACITIDINE
     Dosage: 75 MILLIGRAM/SQ. METER
     Route: 041
     Dates: start: 20171211

REACTIONS (1)
  - Hypotension [Fatal]

NARRATIVE: CASE EVENT DATE: 20171216
